FAERS Safety Report 7865914-9 (Version None)
Quarter: 2011Q4

REPORT INFORMATION
  Report Type: 
  Country: None (occurrence: None)
  Receive Date: 20111028
  Receipt Date: 20110315
  Transmission Date: 20120403
  Serious: No
  Sender: FDA-Public Use
  Company Number: US-GLAXOSMITHKLINE-A0919059A

PATIENT
  Age: 37 Year
  Sex: Female
  Weight: 61.4 kg

DRUGS (1)
  1. ADVAIR DISKUS 100/50 [Suspect]
     Indication: BRONCHIAL HYPERREACTIVITY
     Route: 065

REACTIONS (5)
  - PAIN IN EXTREMITY [None]
  - FEELING ABNORMAL [None]
  - PAIN [None]
  - ANXIETY [None]
  - ADVERSE EVENT [None]
